FAERS Safety Report 13641266 (Version 1)
Quarter: 2017Q2

REPORT INFORMATION
  Report Type: Spontaneous
  Country: US (occurrence: US)
  Receive Date: 20170609
  Receipt Date: 20170609
  Transmission Date: 20170830
  Serious: Yes (Other)
  Sender: FDA-Public Use
  Company Number: None

PATIENT
  Age: 80 Year
  Sex: Male
  Weight: 101.2 kg

DRUGS (12)
  1. COMPLETE PROBIOTICS [Concomitant]
  2. VITAMIN C [Concomitant]
     Active Substance: ASCORBIC ACID
  3. PRADAXA [Suspect]
     Active Substance: DABIGATRAN ETEXILATE MESYLATE
     Indication: ATRIAL FIBRILLATION
     Dosage: ?          QUANTITY:12 CAPSULE(S);?
     Route: 048
     Dates: start: 20160909, end: 20161026
  4. DOXAZOSIN [Concomitant]
     Active Substance: DOXAZOSIN\DOXAZOSIN MESYLATE
  5. PRESERVISION (AREDS FORMULA) [Concomitant]
  6. HAWAIIAN ASTAXANTHIN [Concomitant]
  7. WARFARIN [Concomitant]
     Active Substance: WARFARIN
  8. LOSARTAN. [Concomitant]
     Active Substance: LOSARTAN
  9. HYDROCHLORODIZE [Concomitant]
  10. VITAMIN D3 [Suspect]
     Active Substance: CHOLECALCIFEROL
  11. VITAMIN B12 [Concomitant]
     Active Substance: CYANOCOBALAMIN
  12. MAGNESIUM (GLYCINATE CHELATE) [Concomitant]

REACTIONS (2)
  - Oesophageal disorder [None]
  - Chronic gastritis [None]

NARRATIVE: CASE EVENT DATE: 20160923
